FAERS Safety Report 7686279-1 (Version None)
Quarter: 2011Q3

REPORT INFORMATION
  Report Type: 
  Country: None (occurrence: None)
  Receive Date: 20110816
  Receipt Date: 20110214
  Transmission Date: 20111222
  Serious: No
  Sender: FDA-Public Use
  Company Number: US-GLAXOSMITHKLINE-A0913394A

PATIENT
  Age: 81 Year
  Sex: Female

DRUGS (1)
  1. TAGAMET HB 200 [Suspect]
     Indication: DYSPEPSIA
     Route: 048

REACTIONS (8)
  - HYPERSENSITIVITY [None]
  - VOMITING [None]
  - PAIN [None]
  - MALAISE [None]
  - DYSPEPSIA [None]
  - GASTRITIS [None]
  - CONDITION AGGRAVATED [None]
  - ADVERSE REACTION [None]
